FAERS Safety Report 16317929 (Version 1)
Quarter: 2019Q2

REPORT INFORMATION
  Report Type: Spontaneous
  Country: IL (occurrence: IL)
  Receive Date: 20190516
  Receipt Date: 20190516
  Transmission Date: 20190711
  Serious: Yes (Other)
  Sender: FDA-Public Use
  Company Number: IL-TEVA-2019-IL-1025511

PATIENT
  Age: 61 Year
  Sex: Female

DRUGS (6)
  1. ASPIRIN. [Concomitant]
     Active Substance: ASPIRIN
  2. OMEPRADEX [Concomitant]
     Active Substance: OMEPRAZOLE
  3. RISEDRONATE SODIUM UNKNOWN [Suspect]
     Active Substance: RISEDRONATE SODIUM
     Indication: OSTEOPOROSIS
     Route: 048
  4. CARDILOC [Concomitant]
     Active Substance: BISOPROLOL FUMARATE
  5. LIPITOR [Concomitant]
     Active Substance: ATORVASTATIN CALCIUM
  6. VASCASE PLUS [Concomitant]

REACTIONS (3)
  - Scleritis [Recovered/Resolved]
  - Ocular hyperaemia [Recovered/Resolved]
  - Conjunctival oedema [Recovered/Resolved]

NARRATIVE: CASE EVENT DATE: 201103
